FAERS Safety Report 5074054-6 (Version None)
Quarter: 2006Q3

REPORT INFORMATION
  Report Type: 
  Country: None (occurrence: None)
  Receive Date: 20060808
  Receipt Date: 20060802
  Transmission Date: 20061208
  Serious: Yes (Hospitalization)
  Sender: FDA-Public Use
  Company Number: NL-SANOFI-SYNTHELABO-F01200601787

PATIENT
  Sex: Male

DRUGS (5)
  1. DETROL [Concomitant]
     Route: 048
  2. COVERSYL PLUS [Concomitant]
     Dosage: 4/1.25 MG DAILY
     Route: 048
  3. AVASTIN [Suspect]
     Indication: COLORECTAL CANCER
     Dosage: 750 MG
     Route: 041
     Dates: start: 20060516, end: 20060516
  4. CAPECITABINE [Suspect]
     Indication: COLORECTAL CANCER
     Dosage: 1000MG/M2 ORALLY B.I.D. ON DAY 1-14 (1250MG/M2 AFTER 6 CYCLES) 3000 MG
     Route: 048
     Dates: start: 20060516, end: 20060516
  5. OXALIPLATIN [Suspect]
     Indication: COLORECTAL CANCER
     Route: 041
     Dates: start: 20060516, end: 20060516

REACTIONS (2)
  - CIRCULATORY COLLAPSE [None]
  - PYREXIA [None]
